FAERS Safety Report 7064594-2 (Version None)
Quarter: 2010Q4

REPORT INFORMATION
  Report Type: 
  Country: None (occurrence: None)
  Receive Date: 20101022
  Receipt Date: 20101022
  Transmission Date: 20110411
  Serious: No
  Sender: FDA-Public Use
  Company Number: None

PATIENT
  Sex: Female

DRUGS (1)
  1. CLINDAMYCIN [Suspect]
     Dosage: 300MG QID ORAL
     Route: 048
     Dates: start: 20101005, end: 20101014

REACTIONS (1)
  - RASH MACULO-PAPULAR [None]
